FAERS Safety Report 5217911-X (Version None)
Quarter: 2007Q1

REPORT INFORMATION
  Report Type: 
  Country: None (occurrence: None)
  Receive Date: 20061130
  Receipt Date: 20060815
  Transmission Date: 20070707
  Serious: Yes (Other)
  Sender: FDA-Public Use
  Company Number: US200608001202

PATIENT
  Age: 59 Year
  Sex: Female
  Weight: 68.5 kg

DRUGS (4)
  1. ZYPREXA [Suspect]
     Dosage: 20 MG
     Dates: start: 20000101, end: 20040101
  2. BUPROPION HCL [Concomitant]
  3. MIRTAZAPINE [Concomitant]
  4. PAROXETINE [Concomitant]

REACTIONS (4)
  - DIABETES MELLITUS [None]
  - OBESITY [None]
  - PANCREATITIS [None]
  - WEIGHT DECREASED [None]
